FAERS Safety Report 7756068-8 (Version None)
Quarter: 2011Q3

REPORT INFORMATION
  Report Type: 
  Country: None (occurrence: None)
  Receive Date: 20110916
  Receipt Date: 20100804
  Transmission Date: 20111222
  Serious: No
  Sender: FDA-Public Use
  Company Number: US-BAYER-201032423NA

PATIENT
  Age: 24 Year
  Sex: Female

DRUGS (1)
  1. MIRENA [Suspect]
     Indication: CONTRACEPTION
     Dosage: 20 MCG/DAY
     Dates: start: 20070201

REACTIONS (6)
  - DYSPNOEA [None]
  - ACNE [None]
  - URTICARIA [None]
  - VULVOVAGINAL SWELLING [None]
  - ALOPECIA [None]
  - WEIGHT INCREASED [None]
